FAERS Safety Report 7693065-5 (Version None)
Quarter: 2011Q3

REPORT INFORMATION
  Report Type: 
  Country: None (occurrence: None)
  Receive Date: 20110819
  Receipt Date: 20110818
  Transmission Date: 20111222
  Serious: No
  Sender: FDA-Public Use
  Company Number: US-PFIZER INC-2011191176

PATIENT
  Sex: Male

DRUGS (1)
  1. PEDIATRIC ADVIL [Suspect]
     Indication: ANALGESIC THERAPY
     Dosage: UNK
     Dates: start: 20110807, end: 20110801

REACTIONS (1)
  - RASH ERYTHEMATOUS [None]
